FAERS Safety Report 8454076-5 (Version None)
Quarter: 2012Q2

REPORT INFORMATION
  Report Type: 
  Country: None (occurrence: None)
  Receive Date: 20120620
  Receipt Date: 20120615
  Transmission Date: 20120825
  Serious: Yes (Other)
  Sender: FDA-Public Use
  Company Number: US-PFIZER INC-2012119511

PATIENT
  Sex: Male
  Weight: 97.506 kg

DRUGS (10)
  1. PRADAXA [Concomitant]
     Dosage: 150 BID
     Dates: start: 20110328
  2. QUINAPRIL HCL [Suspect]
     Indication: CORONARY ARTERY DISEASE
  3. OMEPRAZOLE [Concomitant]
     Dosage: UNK
  4. BYSTOLIC [Concomitant]
     Indication: CORONARY ARTERY DISEASE
  5. HYDROCHLOROTHIAZIDE [Concomitant]
     Indication: BLOOD PRESSURE INCREASED
     Dosage: 25 MG, DAILY
     Dates: start: 20081209
  6. LIPITOR [Concomitant]
     Dosage: 20 DAILY
     Dates: start: 20090311
  7. BYSTOLIC [Concomitant]
     Indication: BLOOD PRESSURE INCREASED
     Dosage: 10 MG, DAILY
     Dates: start: 20100111
  8. ASPIRIN [Concomitant]
     Dosage: UNK
  9. QUINAPRIL HCL [Suspect]
     Indication: HYPERTENSION
     Dosage: 40 MG, 1X/DAY
     Route: 048
     Dates: end: 20120517
  10. AMLODIPINE [Concomitant]
     Indication: BLOOD PRESSURE INCREASED
     Dosage: 10 MG, DAILY
     Dates: start: 20081209

REACTIONS (6)
  - DYSPNOEA [None]
  - CHOKING [None]
  - RETCHING [None]
  - BRONCHIECTASIS [None]
  - SINUSITIS [None]
  - COUGH [None]
